FAERS Safety Report 14255316 (Version 4)
Quarter: 2018Q1

REPORT INFORMATION
  Report Type: Spontaneous
  Country: JP (occurrence: JP)
  Receive Date: 20171206
  Receipt Date: 20180208
  Transmission Date: 20180508
  Serious: Yes (Hospitalization, Disabling)
  Sender: FDA-Public Use
  Company Number: JP-ABBVIE-17K-087-2184916-00

PATIENT
  Age: 5 Year
  Sex: Female

DRUGS (12)
  1. HUMIRA [Suspect]
     Active Substance: ADALIMUMAB
     Route: 058
     Dates: start: 20171204, end: 20171204
  2. HUMIRA [Suspect]
     Active Substance: ADALIMUMAB
     Indication: CROHN^S DISEASE
     Route: 058
     Dates: start: 20171107, end: 20171107
  3. PREDNISOLONE. [Concomitant]
     Active Substance: PREDNISOLONE
     Indication: CROHN^S DISEASE
     Route: 048
     Dates: start: 201705
  4. ALFACALCIDOL [Concomitant]
     Active Substance: ALFACALCIDOL
     Indication: OSTEOPOROSIS
     Route: 048
     Dates: start: 20170712
  5. AZATHIOPRINE. [Concomitant]
     Active Substance: AZATHIOPRINE
     Indication: CROHN^S DISEASE
     Route: 048
     Dates: start: 20170911
  6. CALCIUM LACTATE HYDRATE [Concomitant]
     Active Substance: CALCIUM LACTATE
     Indication: OSTEOPOROSIS
     Route: 048
     Dates: start: 20170712
  7. HUMIRA [Suspect]
     Active Substance: ADALIMUMAB
     Route: 058
     Dates: start: 2017, end: 2017
  8. LEVOCARNITINE. [Concomitant]
     Active Substance: LEVOCARNITINE
     Indication: CARNITINE DEFICIENCY
     Route: 048
  9. MESALAZINE [Concomitant]
     Active Substance: MESALAMINE
     Indication: CROHN^S DISEASE
     Route: 048
     Dates: start: 201702
  10. MONTELUKAST SODIUM. [Concomitant]
     Active Substance: MONTELUKAST SODIUM
     Indication: FOOD ALLERGY
     Route: 048
  11. PROGRAF [Suspect]
     Active Substance: TACROLIMUS\TACROLIMUS ANHYDROUS
     Indication: CROHN^S DISEASE
     Route: 048
     Dates: start: 20171013, end: 20171204
  12. ELENTAL [Concomitant]
     Active Substance: AMINO ACIDS\CARBOHYDRATES\MINERALS\SOYBEAN OIL\VITAMINS
     Indication: CROHN^S DISEASE
     Route: 048
     Dates: start: 201702

REACTIONS (8)
  - Off label use [Unknown]
  - Otitis media [Unknown]
  - Spinal cord infarction [Not Recovered/Not Resolved]
  - Paralysis [Unknown]
  - Haemorrhagic cerebral infarction [Not Recovered/Not Resolved]
  - Sinusitis [Unknown]
  - Spinal shock [Unknown]
  - Pulmonary oedema [Recovered/Resolved]

NARRATIVE: CASE EVENT DATE: 2017
